FAERS Safety Report 19941291 (Version 1)
Quarter: 2021Q4

REPORT INFORMATION
  Report Type: Spontaneous
  Country: US (occurrence: US)
  Receive Date: 20211011
  Receipt Date: 20211011
  Transmission Date: 20220303
  Serious: No
  Sender: FDA-Public Use
  Company Number: US-JAZZ-2021-US-006765

PATIENT
  Age: 62 Year
  Sex: Female

DRUGS (3)
  1. SUNOSI [Suspect]
     Active Substance: SOLRIAMFETOL
     Indication: Somnolence
     Dosage: 75 MILLIGRAM, QD (QAM)
     Dates: start: 20190725, end: 20191111
  2. SUNOSI [Suspect]
     Active Substance: SOLRIAMFETOL
     Indication: Narcolepsy
     Dosage: UNKNOWN DOSE
     Dates: end: 20200529
  3. SUNOSI [Suspect]
     Active Substance: SOLRIAMFETOL
     Indication: Cataplexy

REACTIONS (3)
  - Feeling abnormal [Unknown]
  - Dizziness [Recovered/Resolved]
  - Nausea [Recovered/Resolved]

NARRATIVE: CASE EVENT DATE: 20191111
